FAERS Safety Report 9293859 (Version 2)
Quarter: 2013Q2

REPORT INFORMATION
  Report Type: Spontaneous
  Country: US (occurrence: US)
  Receive Date: 20130516
  Receipt Date: 20130617
  Transmission Date: 20140414
  Serious: Yes (Other)
  Sender: FDA-Public Use
  Company Number: US-PFIZER INC-2013149865

PATIENT
  Age: 79 Year
  Sex: Male

DRUGS (3)
  1. SUTENT [Suspect]
     Indication: RENAL CELL CARCINOMA
     Dosage: 50 MG ONCE A DAY (4 WEEKS ON 2 WEEKS OFF)
     Route: 048
     Dates: start: 20120509
  2. SUTENT [Suspect]
     Dosage: 50 MG, ALTERNATE DAY
     Route: 048
  3. SUTENT [Suspect]
     Dosage: 50 MG ONCE A DAY (4 WEEKS ON, 2 WEEKS OFF.)
     Route: 048

REACTIONS (2)
  - Renal impairment [Recovered/Resolved]
  - Impaired healing [Recovered/Resolved]
